FAERS Safety Report 21940048 (Version 2)
Quarter: 2023Q1

REPORT INFORMATION
  Report Type: Spontaneous
  Country: US (occurrence: US)
  Receive Date: 20230201
  Receipt Date: 20230209
  Transmission Date: 20230417
  Serious: Yes (Life-Threatening, Hospitalization, Other)
  Sender: FDA-Public Use
  Company Number: None

PATIENT
  Age: 15 Year
  Sex: Male

DRUGS (2)
  1. IBUPROFEN [Suspect]
     Active Substance: IBUPROFEN
     Indication: Product used for unknown indication
     Dosage: 300 DOSAGE FORM, TOTAL (INGESTED THREE HUNDRED 400MG TABLETS (1666 MG/KG) /300 DOSAGE FORM, TOTAL (T
     Route: 048
  2. BENADRYL [Suspect]
     Active Substance: DIPHENHYDRAMINE HYDROCHLORIDE
     Indication: Product used for unknown indication
     Dosage: INGESTED FOURTEEN 25MG TABLETS /14 DOSAGE FORM, TOTAL
     Route: 048

REACTIONS (13)
  - Lactic acidosis [Recovered/Resolved]
  - Hyperkalaemia [Recovered/Resolved]
  - Hypocalcaemia [Recovered/Resolved]
  - Cardiac arrest [Recovered/Resolved]
  - Electrolyte imbalance [Unknown]
  - Pulmonary sequestration [Unknown]
  - Acute respiratory distress syndrome [Recovered/Resolved]
  - Leukopenia [Recovered/Resolved]
  - Intentional product misuse [Unknown]
  - Renal failure [Recovered/Resolved]
  - Metabolic acidosis [Recovered/Resolved]
  - Toxicity to various agents [Recovered/Resolved]
  - Overdose [Recovered/Resolved]
